FAERS Safety Report 4692954-3 (Version None)
Quarter: 2005Q2

REPORT INFORMATION
  Report Type: 
  Country: None (occurrence: None)
  Receive Date: 20050615
  Receipt Date: 20050601
  Transmission Date: 20051028
  Serious: Yes (Other)
  Sender: FDA-Public Use
  Company Number: 2005083597

PATIENT
  Age: 40 Year
  Sex: Female
  Weight: 63.5036 kg

DRUGS (2)
  1. DEPO-PROVERA [Suspect]
     Indication: CONTRACEPTION
     Dosage: FIRST INJECTION, EVERY 3 MONTHS, INTRAMUSCULAR
     Route: 030
     Dates: start: 20050407, end: 20050407
  2. VITAMINS [Concomitant]

REACTIONS (11)
  - DRUG INEFFECTIVE [None]
  - ERYTHEMA [None]
  - FLUSHING [None]
  - INCORRECT DOSE ADMINISTERED [None]
  - INSOMNIA [None]
  - METRORRHAGIA [None]
  - MUSCLE SPASMS [None]
  - PAIN IN EXTREMITY [None]
  - PRURITUS [None]
  - SWELLING FACE [None]
  - URTICARIA [None]
